FAERS Safety Report 9418993 (Version 3)
Quarter: 2013Q3

REPORT INFORMATION
  Report Type: Spontaneous
  Country: JP (occurrence: JP)
  Receive Date: 20130725
  Receipt Date: 20130913
  Transmission Date: 20140515
  Serious: Yes (Other)
  Sender: FDA-Public Use
  Company Number: PHHY2013JP078298

PATIENT
  Age: 56 Year
  Sex: Female

DRUGS (1)
  1. ZOMETA [Suspect]
     Indication: BREAST CANCER METASTATIC
     Dosage: 4 MG, PER ADMINISTRATION
     Route: 041
     Dates: start: 20120224, end: 20130807

REACTIONS (2)
  - Keratitis [Recovered/Resolved]
  - Photophobia [Unknown]
